FAERS Safety Report 6753458-7 (Version None)
Quarter: 2010Q2

REPORT INFORMATION
  Report Type: 
  Country: None (occurrence: None)
  Receive Date: 20100603
  Receipt Date: 20100527
  Transmission Date: 20101027
  Serious: Yes (Other)
  Sender: FDA-Public Use
  Company Number: JP-JNJFOC-20100507359

PATIENT
  Age: 79 Year
  Sex: Male

DRUGS (8)
  1. DUROTEP MT [Suspect]
     Indication: CANCER PAIN
     Dosage: 25 UG/HR AND 50 UG/HR
     Route: 062
  2. MAGMITT [Concomitant]
     Route: 048
  3. MYSLEE [Concomitant]
     Route: 048
  4. CORTRIL [Concomitant]
     Route: 048
  5. TAKEPRON [Concomitant]
     Route: 048
  6. NAPROXEN [Concomitant]
     Route: 048
  7. OXINORM (OXYCODONE HYDROCHLORIDE) [Concomitant]
     Route: 048
  8. SULBACTAM SODIUM/AMPICILLIN SODIUM [Concomitant]
     Route: 042

REACTIONS (6)
  - DEPRESSED LEVEL OF CONSCIOUSNESS [None]
  - LUNG ADENOCARCINOMA [None]
  - PNEUMONIA [None]
  - PYREXIA [None]
  - SEPSIS [None]
  - SOMNOLENCE [None]
